FAERS Safety Report 12581170 (Version 3)
Quarter: 2017Q3

REPORT INFORMATION
  Report Type: Report from Study
  Country: US (occurrence: US)
  Receive Date: 20160721
  Receipt Date: 20170822
  Transmission Date: 20171127
  Serious: Yes (Other)
  Sender: FDA-Public Use
  Company Number: PHHY2016US083186

PATIENT
  Age: 42 Year
  Sex: Female

DRUGS (2)
  1. WELLBUTRIN [Concomitant]
     Active Substance: BUPROPION HYDROCHLORIDE
     Indication: DEPRESSION
     Route: 065
     Dates: start: 20160307
  2. GILENYA [Suspect]
     Active Substance: FINGOLIMOD HYDROCHLORIDE
     Indication: MULTIPLE SCLEROSIS
     Dosage: QD
     Route: 048

REACTIONS (11)
  - Dyspnoea [Unknown]
  - Tremor [Unknown]
  - Memory impairment [Unknown]
  - Blindness transient [Unknown]
  - Paraesthesia [Not Recovered/Not Resolved]
  - Constipation [Unknown]
  - Smear cervix abnormal [Not Recovered/Not Resolved]
  - Musculoskeletal stiffness [Unknown]
  - Aspartate aminotransferase increased [Unknown]
  - Alanine aminotransferase increased [Unknown]
  - Pain [Unknown]

NARRATIVE: CASE EVENT DATE: 20160218
